FAERS Safety Report 7933767 (Version 3)
Quarter: 2012Q4

REPORT INFORMATION
  Report Type: 
  Country: US (occurrence: US)
  Receive Date: 20110506
  Receipt Date: 20121207
  Transmission Date: 20130627
  Serious: Yes (Other)
  Sender: FDA-Public Use
  Company Number: US-ROCHE-747977

PATIENT
  Age: 18 Year
  Sex: Female
  Weight: 72.6 kg

DRUGS (7)
  1. ACCUTANE [Suspect]
     Indication: ACNE
     Route: 048
  2. ACCUTANE [Suspect]
     Route: 048
     Dates: start: 20011204, end: 20020416
  3. ACCUTANE [Suspect]
     Route: 048
  4. ACCUTANE [Suspect]
     Route: 048
     Dates: start: 20030601, end: 20031101
  5. AMNESTEEM [Suspect]
     Indication: ACNE
     Route: 048
  6. CLARAVIS [Suspect]
     Indication: PRODUCT USED FOR UNKNOWN INDICATION
     Route: 048
  7. VIOXX [Concomitant]
     Route: 065

REACTIONS (16)
  - Crohn^s disease [Unknown]
  - Abdominal pain [Unknown]
  - Rectal haemorrhage [Unknown]
  - Inflammatory bowel disease [Unknown]
  - Intestinal haemorrhage [Unknown]
  - Colitis [Unknown]
  - Depression [Unknown]
  - Epistaxis [Unknown]
  - Blood triglycerides increased [Unknown]
  - Dry skin [Unknown]
  - Blood cholesterol increased [Unknown]
  - Night blindness [Unknown]
  - Headache [Unknown]
  - Lip dry [Unknown]
  - Dry eye [Unknown]
  - Red blood cell sedimentation rate increased [Unknown]
